FAERS Safety Report 15408376 (Version 1)
Quarter: 2018Q3

REPORT INFORMATION
  Report Type: Spontaneous
  Country: US (occurrence: US)
  Receive Date: 20180920
  Receipt Date: 20180920
  Transmission Date: 20181010
  Serious: No
  Sender: FDA-Public Use
  Company Number: US-009507513-1809USA004322

PATIENT
  Sex: Female

DRUGS (5)
  1. BELSOMRA [Suspect]
     Active Substance: SUVOREXANT
     Dosage: ONE 20 MG
     Route: 065
     Dates: start: 20180910
  2. BELSOMRA [Suspect]
     Active Substance: SUVOREXANT
     Indication: PRODUCT USED FOR UNKNOWN INDICATION
     Dosage: 10 MG, UNK
     Route: 065
     Dates: end: 2017
  3. BELSOMRA [Suspect]
     Active Substance: SUVOREXANT
     Dosage: 20 MG, UNK
     Route: 065
     Dates: end: 2017
  4. AMBIEN [Suspect]
     Active Substance: ZOLPIDEM TARTRATE
     Indication: PRODUCT USED FOR UNKNOWN INDICATION
     Dosage: UNK
     Route: 065
  5. BELSOMRA [Suspect]
     Active Substance: SUVOREXANT
     Dosage: UNK
     Route: 065
     Dates: end: 2017

REACTIONS (2)
  - Hangover [Unknown]
  - Expired product administered [Unknown]

NARRATIVE: CASE EVENT DATE: 20180910
